APPROVED DRUG PRODUCT: ABACAVIR SULFATE AND LAMIVUDINE
Active Ingredient: ABACAVIR SULFATE; LAMIVUDINE
Strength: EQ 600MG BASE;300MG
Dosage Form/Route: TABLET;ORAL
Application: A206151 | Product #001
Applicant: AUROBINDO PHARMA LTD
Approved: Mar 28, 2017 | RLD: No | RS: No | Type: DISCN